FAERS Safety Report 4737472-9 (Version None)
Quarter: 2005Q3

REPORT INFORMATION
  Report Type: 
  Country: None (occurrence: None)
  Receive Date: 20050809
  Receipt Date: 20050708
  Transmission Date: 20060218
  Serious: No
  Sender: FDA-Public Use
  Company Number: US-GLAXOSMITHKLINE-A0565672A

PATIENT
  Age: 41 Year
  Sex: Female

DRUGS (2)
  1. COMMIT [Suspect]
  2. NICODERM CQ [Suspect]

REACTIONS (7)
  - APPLICATION SITE ERYTHEMA [None]
  - APPLICATION SITE PRURITUS [None]
  - DYSPHAGIA [None]
  - HYPERSENSITIVITY [None]
  - ODYNOPHAGIA [None]
  - TONGUE BLISTERING [None]
  - URTICARIA [None]
